FAERS Safety Report 22234242 (Version 1)
Quarter: 2023Q2

REPORT INFORMATION
  Report Type: Spontaneous
  Country: US (occurrence: None)
  Receive Date: 20230420
  Receipt Date: 20230420
  Transmission Date: 20230721
  Serious: No
  Sender: FDA-Public Use
  Company Number: US-ROCHE-3177451

PATIENT
  Sex: Male

DRUGS (3)
  1. ESBRIET [Suspect]
     Active Substance: PIRFENIDONE
     Indication: Idiopathic pulmonary fibrosis
     Dosage: TID
     Route: 048
     Dates: start: 20220127
  2. ESBRIET [Suspect]
     Active Substance: PIRFENIDONE
     Route: 048
     Dates: start: 20220203
  3. ASPIRIN [Concomitant]
     Active Substance: ASPIRIN

REACTIONS (5)
  - Fatigue [Unknown]
  - Decreased appetite [Unknown]
  - Fatigue [Unknown]
  - Dyspepsia [Unknown]
  - Pruritus [Unknown]
